FAERS Safety Report 6355274-7 (Version None)
Quarter: 2009Q3

REPORT INFORMATION
  Report Type: 
  Country: None (occurrence: None)
  Receive Date: 20090914
  Receipt Date: 20090902
  Transmission Date: 20100115
  Serious: Yes (Death, Hospitalization)
  Sender: FDA-Public Use
  Company Number: US-PFIZER INC-2009235673

PATIENT
  Sex: Female
  Weight: 68 kg

DRUGS (3)
  1. PROCARDIA [Suspect]
     Indication: HYPERTENSION
     Dosage: 60 MG, 1X/DAY
     Route: 048
     Dates: start: 20020716, end: 20050705
  2. PROCARDIA [Suspect]
     Dosage: 90 MG, 1X/DAY
     Route: 048
     Dates: start: 20050706
  3. CYCLOBENZAPRINE [Concomitant]

REACTIONS (2)
  - HEPATIC CIRRHOSIS [None]
  - JAUNDICE [None]
